FAERS Safety Report 17396900 (Version 3)
Quarter: 2023Q2

REPORT INFORMATION
  Report Type: Spontaneous
  Country: CM (occurrence: CM)
  Receive Date: 20200210
  Receipt Date: 20230505
  Transmission Date: 20230722
  Serious: Yes (Hospitalization, Other)
  Sender: FDA-Public Use
  Company Number: CM-009507513-2002CMR000806

PATIENT
  Age: 19 Year
  Sex: Female

DRUGS (1)
  1. MECTIZAN [Suspect]
     Active Substance: IVERMECTIN
     Indication: Suicidal ideation
     Dosage: 3 MILLIGRAMS, ABOUT 400 PILLS, ONCE
     Route: 048
     Dates: start: 20181211, end: 20181211

REACTIONS (6)
  - Poisoning deliberate [Recovered/Resolved]
  - Toxicity to various agents [Recovered/Resolved]
  - Intentional overdose [Recovered/Resolved]
  - Mydriasis [Unknown]
  - Ataxia [Unknown]
  - Hyperreflexia [Unknown]

NARRATIVE: CASE EVENT DATE: 20181211
